FAERS Safety Report 14996521 (Version 3)
Quarter: 2021Q2

REPORT INFORMATION
  Report Type: Spontaneous
  Country: US (occurrence: US)
  Receive Date: 20180611
  Receipt Date: 20210507
  Transmission Date: 20210716
  Serious: Yes (Other)
  Sender: FDA-Public Use
  Company Number: US-BEH-2018091415

PATIENT
  Age: 30 Year
  Sex: Female
  Weight: 74.83 kg

DRUGS (7)
  1. HAEGARDA [Suspect]
     Active Substance: HUMAN C1-ESTERASE INHIBITOR
     Indication: HEREDITARY ANGIOEDEMA
     Dosage: UNK
     Route: 058
     Dates: start: 201805
  2. FIRAZYR [Concomitant]
     Active Substance: ICATIBANT ACETATE
  3. HAEGARDA [Suspect]
     Active Substance: HUMAN C1-ESTERASE INHIBITOR
     Indication: PROPHYLAXIS
     Dosage: 4000 INTERNATIONAL UNIT, TOT
     Route: 058
  4. EPINEPHRINE. [Concomitant]
     Active Substance: EPINEPHRINE
  5. HAEGARDA [Suspect]
     Active Substance: HUMAN C1-ESTERASE INHIBITOR
     Indication: HEREDITARY ANGIOEDEMA
     Dosage: 4000 INTERNATIONAL UNIT, BIW
     Route: 058
     Dates: start: 20180424
  6. ZYRTEC [Concomitant]
     Active Substance: CETIRIZINE HYDROCHLORIDE
  7. LORATADINE. [Concomitant]
     Active Substance: LORATADINE

REACTIONS (8)
  - Infusion site induration [Recovered/Resolved]
  - Infusion site irritation [Recovered/Resolved]
  - Injection site erythema [Unknown]
  - Infusion site pruritus [Recovered/Resolved]
  - Abdominal pain upper [Unknown]
  - Hereditary angioedema [Unknown]
  - Infusion site warmth [Recovered/Resolved]
  - Infusion site pain [Recovered/Resolved]

NARRATIVE: CASE EVENT DATE: 201805
